FAERS Safety Report 17567645 (Version 1)
Quarter: 2020Q1

REPORT INFORMATION
  Report Type: Other
  Country: None (occurrence: PL)
  Receive Date: 20200320
  Receipt Date: 20200320
  Transmission Date: 20200409
  Serious: Yes (Hospitalization, Other)
  Sender: FDA-Public Use
  Company Number: PT-ALSI-202000089

PATIENT
  Age: 70 Year

DRUGS (10)
  1. DABIGATRAN [Suspect]
     Active Substance: DABIGATRAN
  2. OXYGEN. [Suspect]
     Active Substance: OXYGEN
     Indication: PRODUCT USED FOR UNKNOWN INDICATION
     Route: 055
  3. CLOPIDOGREL [Suspect]
     Active Substance: CLOPIDOGREL BISULFATE
  4. DIGITALIS [Suspect]
     Active Substance: DIGITALIS
  5. MAGNESIUM SULFATE. [Suspect]
     Active Substance: MAGNESIUM SULFATE
  6. MORPHINE SULFATE. [Suspect]
     Active Substance: MORPHINE SULFATE
  7. PURE NITROGLYCERIN [Suspect]
     Active Substance: NITROGLYCERIN
  8. AMIODARONE HYDROCHLORIDE. [Suspect]
     Active Substance: AMIODARONE HYDROCHLORIDE
  9. ASPIRIN. [Suspect]
     Active Substance: ASPIRIN
  10. BISOPROLOL FUMARATE. [Suspect]
     Active Substance: BISOPROLOL FUMARATE

REACTIONS (5)
  - Hypomagnesaemia [Unknown]
  - Ventricular fibrillation [Recovered/Resolved]
  - Cardiac failure [Recovered/Resolved]
  - Drug ineffective [Recovered/Resolved]
  - Torsade de pointes [Recovered/Resolved]
